FAERS Safety Report 6388844-0 (Version None)
Quarter: 2009Q4

REPORT INFORMATION
  Report Type: 
  Country: None (occurrence: None)
  Receive Date: 20091001
  Receipt Date: 20090609
  Transmission Date: 20100525
  Serious: Yes (Hospitalization)
  Sender: FDA-Public Use
  Company Number: 2009RR-24559

PATIENT
  Age: 79 Year
  Sex: Female
  Weight: 90 kg

DRUGS (5)
  1. QUINAPRIL AND HYDROCHLOROTHIAZIDE [Suspect]
     Indication: HYPERTENSION
     Dosage: ORAL
     Route: 048
     Dates: start: 20080101, end: 20090512
  2. INSULIN BASAL (INSULIN ISOPHANE HUMAN SEMISYNTHETIC) [Concomitant]
  3. INSULIN RAPID (INSULIN) [Concomitant]
  4. METFORMIN HCL [Concomitant]
  5. PANTOZOL (PANTOZOL) [Concomitant]
     Dates: start: 20080101, end: 20090512

REACTIONS (1)
  - PALPITATIONS [None]
